FAERS Safety Report 8605546-8 (Version None)
Quarter: 2012Q3

REPORT INFORMATION
  Report Type: 
  Country: None (occurrence: None)
  Receive Date: 20120820
  Receipt Date: 20120813
  Transmission Date: 20120928
  Serious: No
  Sender: FDA-Public Use
  Company Number: US-PFIZER INC-2012198493

PATIENT
  Age: 64 Year
  Sex: Female
  Weight: 73.5 kg

DRUGS (5)
  1. DICLOFENAC SODIUM [Suspect]
     Indication: ARTHRITIS
     Dosage: 75 MG, 2X/DAY
  2. BISMUTH SUBSALICYLATE [Suspect]
     Indication: ABDOMINAL PAIN UPPER
     Dosage: UNK
  3. CELEBREX [Concomitant]
     Indication: ARTHRITIS
     Dosage: 200 MG, DAILY
     Dates: start: 20070101
  4. NAPROXEN SODIUM [Suspect]
     Indication: ARTHRITIS
     Dosage: 500 MG, 2X/DAY
  5. IBUPROFEN [Suspect]
     Indication: ARTHRITIS
     Dosage: UNK

REACTIONS (3)
  - MALAISE [None]
  - DRUG INEFFECTIVE [None]
  - ABDOMINAL PAIN UPPER [None]
